FAERS Safety Report 9911629 (Version 1)
Quarter: 2014Q1

REPORT INFORMATION
  Report Type: Spontaneous
  Country: US (occurrence: US)
  Receive Date: 20140219
  Receipt Date: 20140219
  Transmission Date: 20141002
  Serious: Yes (Hospitalization, Other)
  Sender: FDA-Public Use
  Company Number: PHEH2014US003039

PATIENT
  Sex: Male

DRUGS (5)
  1. TEKTURNA [Suspect]
     Dosage: 300 MG
     Route: 048
  2. DOXAZOSIN [Concomitant]
     Dosage: 2 MG, BID
     Route: 048
  3. ASPIRIN [Concomitant]
     Dosage: 81 MG
     Route: 048
  4. VALSARTAN [Concomitant]
     Dosage: 160 MG
     Route: 048
  5. LANTUS [Concomitant]
     Dosage: 100 U
     Route: 058

REACTIONS (12)
  - Appendicitis perforated [Unknown]
  - Abdominal sepsis [Unknown]
  - Abdominal pain [Unknown]
  - Renal failure acute [Unknown]
  - Hyperkalaemia [Unknown]
  - Back pain [Unknown]
  - Diabetes mellitus [Unknown]
  - Hypertension [Unknown]
  - Blood cholesterol increased [Unknown]
  - Renal failure chronic [Unknown]
  - Abdominal distension [Unknown]
  - Anxiety [Unknown]
